FAERS Safety Report 19766997 (Version 13)
Quarter: 2021Q4

REPORT INFORMATION
  Report Type: Report from Study
  Country: US (occurrence: None)
  Receive Date: 20210830
  Receipt Date: 20211124
  Transmission Date: 20220303
  Serious: Yes (Hospitalization)
  Sender: FDA-Public Use
  Company Number: US-EISAI MEDICAL RESEARCH-EC-2021-098686

PATIENT
  Age: 58 Year
  Sex: Female
  Weight: 55.43 kg

DRUGS (15)
  1. LENVATINIB [Suspect]
     Active Substance: LENVATINIB
     Indication: Renal cell carcinoma
     Dosage: STARING DOSE AT 20 MILLIGRAM (FLUCTUATED DOSAGE)
     Route: 048
     Dates: start: 20210803, end: 20210823
  2. LENVATINIB [Suspect]
     Active Substance: LENVATINIB
     Dosage: DOSE REDUCE
     Route: 048
     Dates: start: 20210831
  3. PEMBROLIZUMAB [Suspect]
     Active Substance: PEMBROLIZUMAB
     Indication: Renal cell carcinoma
     Route: 041
     Dates: start: 20210803, end: 20210803
  4. PEMBROLIZUMAB [Suspect]
     Active Substance: PEMBROLIZUMAB
     Route: 041
     Dates: start: 20210907
  5. ONE A DAY ESSENTIAL [VITAMINS NOS] [Concomitant]
     Dates: start: 201801
  6. FISH OIL [Concomitant]
     Active Substance: FISH OIL
     Dates: start: 201801
  7. MAGNESIUM [Concomitant]
     Active Substance: MAGNESIUM
     Dates: start: 202001
  8. DRONABINOL [Concomitant]
     Active Substance: DRONABINOL
     Dates: start: 202102
  9. TYLENOL [Concomitant]
     Active Substance: ACETAMINOPHEN
     Dates: start: 20210608
  10. GABAPENTIN [Concomitant]
     Active Substance: GABAPENTIN
     Dates: start: 20210608
  11. TIZANIDINE HYDROCHLORIDE [Concomitant]
     Active Substance: TIZANIDINE HYDROCHLORIDE
     Dates: start: 20210608
  12. HYDROCHLOROTHIAZIDE [Concomitant]
     Active Substance: HYDROCHLOROTHIAZIDE
     Dates: start: 20210628, end: 20210823
  13. PRINIVIL [Concomitant]
     Active Substance: LISINOPRIL
     Dates: start: 20210810, end: 20210816
  14. PRINIVIL [Concomitant]
     Active Substance: LISINOPRIL
     Dates: start: 20210817
  15. IBUPROFEN [Concomitant]
     Active Substance: IBUPROFEN
     Dates: start: 20210820, end: 20210820

REACTIONS (2)
  - Sinus bradycardia [Recovered/Resolved]
  - Viral infection [Recovered/Resolved]

NARRATIVE: CASE EVENT DATE: 20210822
